FAERS Safety Report 4433371-0 (Version None)
Quarter: 2004Q3

REPORT INFORMATION
  Report Type: 
  Country: None (occurrence: None)
  Receive Date: 20040824
  Receipt Date: 20040813
  Transmission Date: 20050211
  Serious: Yes (Life-Threatening, Hospitalization)
  Sender: FDA-Public Use
  Company Number: 2004226306DE

PATIENT
  Age: 65 Year
  Sex: Female
  Weight: 120 kg

DRUGS (2)
  1. BEXTRA [Suspect]
     Indication: POLYARTHRITIS
     Dosage: ORAL
     Route: 048
     Dates: start: 20040707, end: 20040723
  2. BEXTRA [Suspect]
     Indication: POLYARTHRITIS
     Dosage: ORAL
     Route: 048
     Dates: start: 20040702

REACTIONS (1)
  - HYPERTENSIVE CRISIS [None]
